FAERS Safety Report 6420412-4 (Version None)
Quarter: 2009Q4

REPORT INFORMATION
  Report Type: 
  Country: None (occurrence: None)
  Receive Date: 20091021
  Receipt Date: 20090805
  Transmission Date: 20100525
  Serious: No
  Sender: FDA-Public Use
  Company Number: ALL1-2009-02183

PATIENT
  Age: 42 Year
  Sex: Male
  Weight: 72.6 kg

DRUGS (2)
  1. VYVANSE [Suspect]
     Indication: ATTENTION DEFICIT/HYPERACTIVITY DISORDER
     Dosage: 50 MG, 1X/DAY;QD, ORAL
     Route: 048
     Dates: start: 20090731
  2. VALPROIC ACID [Concomitant]

REACTIONS (3)
  - ABDOMINAL SYMPTOM [None]
  - HYPERSOMNIA [None]
  - VOMITING [None]
